FAERS Safety Report 9820345 (Version 1)
Quarter: 2013Q4

REPORT INFORMATION
  Report Type: Spontaneous
  Country: US (occurrence: None)
  Receive Date: 20131223
  Receipt Date: 20131223
  Transmission Date: 20140711
  Serious: No
  Sender: FDA-Public Use
  Company Number: 217716

PATIENT
  Age: 74 Year
  Sex: Female
  Weight: 100 kg

DRUGS (3)
  1. PICATO [Suspect]
     Indication: ACTINIC KERATOSIS
  2. PICATO [Suspect]
     Indication: SKIN DISORDER
  3. ALDACTONE (SPIRONOLACTONE) (50 MG) [Concomitant]

REACTIONS (2)
  - Application site burn [None]
  - Application site vesicles [None]
